FAERS Safety Report 16549011 (Version 1)
Quarter: 2019Q3

REPORT INFORMATION
  Report Type: Spontaneous
  Country: US (occurrence: US)
  Receive Date: 20190709
  Receipt Date: 20190709
  Transmission Date: 20191004
  Serious: Yes (Death, Hospitalization)
  Sender: FDA-Public Use
  Company Number: US-NOVOPROD-671241

PATIENT
  Age: 91 Year
  Sex: Male

DRUGS (1)
  1. NOVOLOG MIX 70/30 [Suspect]
     Active Substance: INSULIN ASPART
     Indication: DIABETES MELLITUS
     Dosage: UNK
     Route: 058
     Dates: start: 2013

REACTIONS (3)
  - Appendicitis perforated [Unknown]
  - Product use complaint [Unknown]
  - Cerebrovascular accident [Fatal]

NARRATIVE: CASE EVENT DATE: 201906
